FAERS Safety Report 6608806-5 (Version None)
Quarter: 2010Q1

REPORT INFORMATION
  Report Type: 
  Country: None (occurrence: None)
  Receive Date: 20100301
  Receipt Date: 20100219
  Transmission Date: 20100710
  Serious: Yes (Other)
  Sender: FDA-Public Use
  Company Number: US-JNJCH-2010002894

PATIENT
  Sex: Male
  Weight: 90.7 kg

DRUGS (1)
  1. BENGAY ULTRA STRENGTH PATCH [Suspect]
     Indication: BACK PAIN
     Dosage: TEXT:ONE TIME
     Route: 061
     Dates: start: 20081101, end: 20081101

REACTIONS (6)
  - BLISTER [None]
  - BURNS SECOND DEGREE [None]
  - FIBROSIS [None]
  - PAIN [None]
  - SCAR [None]
  - SKIN FIBROSIS [None]
